FAERS Safety Report 7993538-1 (Version None)
Quarter: 2011Q4

REPORT INFORMATION
  Report Type: 
  Country: None (occurrence: None)
  Receive Date: 20111219
  Receipt Date: 20111206
  Transmission Date: 20120403
  Serious: Yes (Death, Hospitalization)
  Sender: FDA-Public Use
  Company Number: DK-PFIZER INC-2011292807

PATIENT
  Sex: Male

DRUGS (1)
  1. SUNITINIB MALATE [Suspect]
     Indication: METASTATIC RENAL CELL CARCINOMA
     Dosage: 25 MG DAILY IN 6 DAYS THEN 1 DAYS PAUSE
     Dates: start: 20091215, end: 20091220

REACTIONS (4)
  - THROMBOCYTOPENIA [None]
  - AZOTAEMIA [None]
  - DEHYDRATION [None]
  - NEUTROPENIA [None]
